FAERS Safety Report 5071690-8 (Version None)
Quarter: 2006Q3

REPORT INFORMATION
  Report Type: 
  Country: None (occurrence: None)
  Receive Date: 20060804
  Receipt Date: 20060608
  Transmission Date: 20061208
  Serious: Yes (Other)
  Sender: FDA-Public Use
  Company Number: PHBS2006IE08501

PATIENT
  Age: 52 Year
  Sex: Male

DRUGS (2)
  1. ZOMETA [Suspect]
     Indication: MULTIPLE MYELOMA
     Dosage: UNK, UNK
     Route: 065
     Dates: start: 20020101
  2. THALIDOMIDE [Concomitant]
     Dosage: 50 MG/D
     Route: 065
     Dates: start: 20030901

REACTIONS (4)
  - BONE MARROW TRANSPLANT [None]
  - IMPAIRED HEALING [None]
  - OSTEONECROSIS [None]
  - TOOTH EXTRACTION [None]
